FAERS Safety Report 9925445 (Version 1)
Quarter: 2014Q1

REPORT INFORMATION
  Report Type: Spontaneous
  Country: US (occurrence: None)
  Receive Date: 20140224
  Receipt Date: 20140224
  Transmission Date: 20141002
  Serious: Yes (Death)
  Sender: FDA-Public Use
  Company Number: NL01PV14.35231

PATIENT
  Age: 36 Year
  Sex: Male

DRUGS (13)
  1. TAMSULOSIN [Suspect]
     Route: 048
  2. MIDAZOLAM [Suspect]
     Route: 048
  3. LOSARTAN (LOSARTAN) [Suspect]
     Route: 048
  4. AMLODIPINE (AMLODIPINE) [Suspect]
     Route: 048
  5. METOPROLOL (METOPROLOL) [Suspect]
     Route: 048
  6. MECLIZINE (MECLIZINE) (MECLIZINE) [Suspect]
     Route: 048
  7. QUININE [Suspect]
     Route: 048
  8. ISOSORBIDE DINITRATE (ISOSORBIDE DINITRATE) (ISOSORBIDE DINITRATE) [Suspect]
     Route: 048
  9. POTASSIUM CHLORIDE (POTASSIUM CHLORIDE) [Suspect]
     Route: 048
  10. FINASTERIDE (FINASTERIDE) [Suspect]
     Route: 048
  11. FUROSEMIDE (FUROSEMIDE) [Suspect]
     Route: 048
  12. ETHANOL [Suspect]
     Route: 048
  13. TEMAZEPAM (TEMAZEPAM) [Suspect]
     Route: 048

REACTIONS (4)
  - Completed suicide [None]
  - Respiratory arrest [None]
  - Cardiac arrest [None]
  - Exposure via ingestion [None]
